FAERS Safety Report 6283303-8 (Version None)
Quarter: 2009Q3

REPORT INFORMATION
  Report Type: 
  Country: None (occurrence: None)
  Receive Date: 20090724
  Receipt Date: 20090128
  Transmission Date: 20100115
  Serious: Yes (Hospitalization)
  Sender: FDA-Public Use
  Company Number: US-AMGEN-KDL322027

PATIENT
  Sex: Female
  Weight: 68.6 kg

DRUGS (1)
  1. PROCRIT [Suspect]
     Indication: ANAEMIA OF MALIGNANT DISEASE
     Route: 065
     Dates: start: 20040801, end: 20050501

REACTIONS (2)
  - PERIPHERAL EMBOLISM [None]
  - THERAPEUTIC RESPONSE DECREASED [None]
